FAERS Safety Report 20479137 (Version 1)
Quarter: 2022Q1

REPORT INFORMATION
  Report Type: Spontaneous
  Country: US (occurrence: US)
  Receive Date: 20220216
  Receipt Date: 20220216
  Transmission Date: 20220424
  Serious: Yes (Other)
  Sender: FDA-Public Use
  Company Number: US-GLAXOSMITHKLINE-US2022GSK024150

PATIENT
  Sex: Female

DRUGS (10)
  1. ZANTAC [Suspect]
     Active Substance: RANITIDINE HYDROCHLORIDE
     Indication: Dyspepsia
     Dosage: 150 MG, OCCASIONAL
     Route: 065
     Dates: start: 198401, end: 201911
  2. ZANTAC [Suspect]
     Active Substance: RANITIDINE HYDROCHLORIDE
     Indication: Dyspepsia
     Dosage: 150 MG, MONTHLY
     Route: 065
     Dates: start: 198401, end: 201911
  3. ZANTAC [Suspect]
     Active Substance: RANITIDINE HYDROCHLORIDE
     Indication: Gastric ulcer
     Dosage: 150 MG, TID
     Route: 065
     Dates: start: 198401, end: 201911
  4. ZANTAC [Suspect]
     Active Substance: RANITIDINE HYDROCHLORIDE
     Indication: Abdominal discomfort
     Dosage: 150 MG, 5X/DAY
     Route: 065
     Dates: start: 198401, end: 201911
  5. ZANTAC [Suspect]
     Active Substance: RANITIDINE HYDROCHLORIDE
     Indication: Adverse drug reaction
     Dosage: 150 MG, AS NEEDED
     Route: 065
     Dates: start: 198401, end: 201911
  6. ZANTAC [Suspect]
     Active Substance: RANITIDINE HYDROCHLORIDE
     Indication: Dyspepsia
     Dosage: 150 MG, OCCASIONAL
     Route: 065
     Dates: start: 198401, end: 201911
  7. ZANTAC [Suspect]
     Active Substance: RANITIDINE HYDROCHLORIDE
     Indication: Dyspepsia
     Dosage: 150 MG, MONTHLY
     Route: 065
     Dates: start: 198401, end: 201911
  8. ZANTAC [Suspect]
     Active Substance: RANITIDINE HYDROCHLORIDE
     Indication: Gastric ulcer
     Dosage: 150 MG, TID
     Route: 065
     Dates: start: 198401, end: 201911
  9. ZANTAC [Suspect]
     Active Substance: RANITIDINE HYDROCHLORIDE
     Indication: Abdominal discomfort
     Dosage: 150 MG, 5X/DAY
     Route: 065
     Dates: start: 198401, end: 201911
  10. ZANTAC [Suspect]
     Active Substance: RANITIDINE HYDROCHLORIDE
     Indication: Adverse drug reaction
     Dosage: 150 MG, AS NEEDED
     Route: 065
     Dates: start: 198401, end: 201911

REACTIONS (1)
  - Breast cancer [Unknown]
